FAERS Safety Report 9649827 (Version 2)
Quarter: 2013Q4

REPORT INFORMATION
  Report Type: Spontaneous
  Country: US (occurrence: US)
  Receive Date: 20131028
  Receipt Date: 20131028
  Transmission Date: 20140711
  Serious: Yes (Death, Other)
  Sender: FDA-Public Use
  Company Number: US-NAPPMUNDI-USA-2011-0066113

PATIENT
  Age: 2 Year
  Sex: Male
  Weight: 11.97 kg

DRUGS (1)
  1. OXYCODONE HYDROCHLORIDE (SIMILAR TO NDA 20-553) [Suspect]
     Indication: ACCIDENTAL EXPOSURE TO PRODUCT

REACTIONS (2)
  - Accidental overdose [Fatal]
  - Accidental exposure to product by child [Fatal]
